FAERS Safety Report 25147770 (Version 1)
Quarter: 2025Q2

REPORT INFORMATION
  Report Type: Spontaneous
  Country: US (occurrence: US)
  Receive Date: 20250402
  Receipt Date: 20250402
  Transmission Date: 20250716
  Serious: Yes (Other)
  Sender: NOVO NORDISK
  Company Number: US-NOVOPROD-1398596

PATIENT
  Age: 68 Year
  Sex: Male

DRUGS (1)
  1. NOVOLOG [Suspect]
     Active Substance: INSULIN ASPART
     Indication: Type 1 diabetes mellitus
     Dosage: 15 IU, QD
     Route: 058
     Dates: start: 1992

REACTIONS (3)
  - Eye infection bacterial [Recovered/Resolved]
  - Visual impairment [Recovered/Resolved]
  - Corneal lesion [Not Recovered/Not Resolved]

NARRATIVE: CASE EVENT DATE: 20250209
